FAERS Safety Report 6968464-7 (Version None)
Quarter: 2010Q3

REPORT INFORMATION
  Report Type: 
  Country: None (occurrence: None)
  Receive Date: 20100907
  Receipt Date: 20100825
  Transmission Date: 20110219
  Serious: Yes (Hospitalization, Other)
  Sender: FDA-Public Use
  Company Number: PHHY2010DE56626

PATIENT
  Sex: Male

DRUGS (1)
  1. GLEEVEC [Suspect]
     Indication: GASTROINTESTINAL STROMAL TUMOUR
     Dosage: 400 MG ONCE DAILY
     Route: 048
     Dates: start: 20000101

REACTIONS (4)
  - INTERVERTEBRAL DISCITIS [None]
  - MYALGIA [None]
  - OSTEOCHONDROSIS [None]
  - PAIN IN EXTREMITY [None]
